FAERS Safety Report 5958612-X (Version None)
Quarter: 2008Q4

REPORT INFORMATION
  Report Type: 
  Country: None (occurrence: None)
  Receive Date: 20081110
  Receipt Date: 20081012
  Transmission Date: 20090506
  Serious: Yes (Death)
  Sender: FDA-Public Use
  Company Number: CHPA2008US17992

PATIENT
  Age: 87 Year
  Sex: Female

DRUGS (2)
  1. ACETYLSALICYLIC ACID SRT [Suspect]
     Dosage: ORAL
     Route: 048
  2. CLOPIDOGREL [Suspect]
     Dosage: ORAL
     Route: 048

REACTIONS (1)
  - ADVERSE DRUG REACTION [None]
